FAERS Safety Report 5501604-5 (Version None)
Quarter: 2007Q4

REPORT INFORMATION
  Report Type: 
  Country: None (occurrence: None)
  Receive Date: 20071030
  Receipt Date: 20071023
  Transmission Date: 20080405
  Serious: Yes (Other)
  Sender: FDA-Public Use
  Company Number: FR-ELI_LILLY_AND_COMPANY-FR200710005789

PATIENT
  Age: 59 Year
  Sex: Male

DRUGS (1)
  1. CIALIS [Suspect]
     Indication: ERECTILE DYSFUNCTION
     Dosage: 1 D/F, OTHER
     Route: 048
     Dates: start: 20070101, end: 20070701

REACTIONS (2)
  - DERMATITIS BULLOUS [None]
  - EPIDERMAL NECROSIS [None]
